FAERS Safety Report 9380999 (Version 1)
Quarter: 2013Q3

REPORT INFORMATION
  Report Type: Spontaneous
  Country: US (occurrence: US)
  Receive Date: 20130703
  Receipt Date: 20130703
  Transmission Date: 20140515
  Serious: Yes (Other)
  Sender: FDA-Public Use
  Company Number: US-BRISTOL-MYERS SQUIBB COMPANY-19042670

PATIENT
  Sex: 0

DRUGS (1)
  1. METFORMIN HCL [Suspect]

REACTIONS (2)
  - Diabetes mellitus inadequate control [Unknown]
  - Myasthenia gravis [Unknown]
